FAERS Safety Report 13757096 (Version 2)
Quarter: 2017Q3

REPORT INFORMATION
  Report Type: Spontaneous
  Country: US (occurrence: US)
  Receive Date: 20170715
  Receipt Date: 20170726
  Transmission Date: 20171127
  Serious: Yes (Hospitalization)
  Sender: FDA-Public Use
  Company Number: US-CELGENEUS-USA-20170701071

PATIENT
  Age: 69 Year
  Sex: Male
  Weight: 98.06 kg

DRUGS (1)
  1. REVLIMID [Suspect]
     Active Substance: LENALIDOMIDE
     Indication: PLASMA CELL MYELOMA
     Dosage: 25 MILLIGRAM
     Route: 048
     Dates: start: 201706

REACTIONS (4)
  - Urinary tract infection [Unknown]
  - Pyrexia [Unknown]
  - Sneezing [Not Recovered/Not Resolved]
  - Full blood count decreased [Unknown]

NARRATIVE: CASE EVENT DATE: 20170705
